FAERS Safety Report 11080616 (Version 1)
Quarter: 2015Q2

REPORT INFORMATION
  Report Type: Spontaneous
  Country: US (occurrence: None)
  Receive Date: 20150429
  Receipt Date: 20150429
  Transmission Date: 20150821
  Serious: Yes (Other)
  Sender: FDA-Public Use
  Company Number: 2837363

PATIENT
  Age: 53 Year
  Sex: Male

DRUGS (1)
  1. DEFEROXAMINE [Suspect]
     Active Substance: DEFEROXAMINE\DEFEROXAMINE MESYLATE
     Indication: PRODUCT USED FOR UNKNOWN INDICATION

REACTIONS (2)
  - Maculopathy [None]
  - Visual acuity reduced [None]
